FAERS Safety Report 6410809-0 (Version None)
Quarter: 2009Q4

REPORT INFORMATION
  Report Type: 
  Country: None (occurrence: None)
  Receive Date: 20091020
  Receipt Date: 20091020
  Transmission Date: 20100525
  Serious: Yes (Life-Threatening)
  Sender: FDA-Public Use
  Company Number: None

PATIENT
  Age: 76 Year
  Sex: Female
  Weight: 59.5 kg

DRUGS (2)
  1. TOPROL-XL [Suspect]
     Indication: HYPERTENSION
     Dosage: ONE TABLET A DAY
     Dates: start: 20090915
  2. TOPROL-XL [Suspect]
     Indication: HYPERTENSION
     Dosage: ONE TABLET A DAY
     Dates: start: 20090930

REACTIONS (5)
  - ABDOMINAL DISCOMFORT [None]
  - GASTROINTESTINAL SOUNDS ABNORMAL [None]
  - HEADACHE [None]
  - RESPIRATORY DISORDER [None]
  - SENSORY DISTURBANCE [None]
